FAERS Safety Report 7543274-0 (Version None)
Quarter: 2011Q2

REPORT INFORMATION
  Report Type: 
  Country: None (occurrence: None)
  Receive Date: 20110607
  Receipt Date: 20110511
  Transmission Date: 20111010
  Serious: Yes (Hospitalization)
  Sender: FDA-Public Use
  Company Number: 2011028534

PATIENT
  Sex: Female

DRUGS (1)
  1. RHO(D) IMMUNE GLOBULIN NOS [Suspect]
     Dosage: (2700 UG QD INTRAVENOUS (NOT OTHERWISE SPECIFIED)
     Route: 042
     Dates: start: 20110507, end: 20110507

REACTIONS (2)
  - CARDIAC ENZYMES INCREASED [None]
  - HAEMOLYSIS [None]
